FAERS Safety Report 23510265 (Version 1)
Quarter: 2024Q1

REPORT INFORMATION
  Report Type: Spontaneous
  Country: IT (occurrence: IT)
  Receive Date: 20240211
  Receipt Date: 20240211
  Transmission Date: 20240409
  Serious: Yes (Other)
  Sender: FDA-Public Use
  Company Number: None

PATIENT
  Age: 77 Year
  Sex: Male

DRUGS (6)
  1. XARELTO [Suspect]
     Active Substance: RIVAROXABAN
     Indication: Atrial fibrillation
     Dosage: 20 MG, QD
     Route: 048
  2. METFORMIN HYDROCHLORIDE [Concomitant]
     Active Substance: METFORMIN HYDROCHLORIDE
     Indication: Type 2 diabetes mellitus
     Dosage: 850 MG, QD
     Route: 048
     Dates: start: 202301
  3. BISOPROLOL FUMARATE [Concomitant]
     Active Substance: BISOPROLOL FUMARATE
     Indication: Hypertension
     Dosage: 2.5 MG, QD
     Route: 048
     Dates: start: 202301
  4. RAMIPRIL [Concomitant]
     Active Substance: RAMIPRIL
     Indication: Hypertension
     Dosage: 5 MG, QD
     Route: 048
     Dates: start: 202303
  5. FINASTERIDE [Concomitant]
     Active Substance: FINASTERIDE
     Indication: Benign prostatic hyperplasia
     Dosage: 5 MG, QD
     Route: 048
     Dates: start: 201506
  6. AIRCORT [BUDESONIDE] [Concomitant]
     Indication: Chronic obstructive pulmonary disease
     Dosage: UNK
     Route: 055
     Dates: start: 202303

REACTIONS (1)
  - Renal failure [Recovered/Resolved]

NARRATIVE: CASE EVENT DATE: 20230301
